FAERS Safety Report 11336981 (Version 2)
Quarter: 2015Q3

REPORT INFORMATION
  Report Type: Spontaneous
  Country: US (occurrence: US)
  Receive Date: 20150804
  Receipt Date: 20150911
  Transmission Date: 20151125
  Serious: Yes (Other)
  Sender: FDA-Public Use
  Company Number: US-ROXANE LABORATORIES, INC.-2015-RO-01259RO

PATIENT
  Age: 18 Year
  Sex: Female

DRUGS (1)
  1. ONDANSETRON [Suspect]
     Active Substance: ONDANSETRON
     Indication: PROPHYLAXIS OF NAUSEA AND VOMITING
     Route: 048
     Dates: start: 20150723, end: 20150724

REACTIONS (4)
  - Vomiting [Unknown]
  - Product quality issue [Unknown]
  - Drug ineffective [Unknown]
  - Dehydration [Unknown]

NARRATIVE: CASE EVENT DATE: 20150723
